FAERS Safety Report 6683904-9 (Version None)
Quarter: 2010Q2

REPORT INFORMATION
  Report Type: 
  Country: None (occurrence: None)
  Receive Date: 20100416
  Receipt Date: 20100408
  Transmission Date: 20101027
  Serious: Yes (Other)
  Sender: FDA-Public Use
  Company Number: US-JNJFOC-20080103895

PATIENT
  Sex: Male
  Weight: 101.15 kg

DRUGS (1)
  1. LEVAQUIN [Suspect]
     Indication: BRONCHITIS
     Route: 048

REACTIONS (2)
  - LOSS OF CONSCIOUSNESS [None]
  - NAUSEA [None]
